FAERS Safety Report 9032592 (Version 2)
Quarter: 2013Q1

REPORT INFORMATION
  Report Type: Spontaneous
  Country: US (occurrence: US)
  Receive Date: 20130122
  Receipt Date: 20130305
  Transmission Date: 20140127
  Serious: No
  Sender: FDA-Public Use
  Company Number: US-PFIZER INC-2013020793

PATIENT
  Age: 86 Year
  Sex: Female

DRUGS (8)
  1. MORPHINE SULFATE [Suspect]
     Dosage: UNK
  2. NITROGLYCERIN [Suspect]
     Dosage: UNK
  3. DILANTIN [Suspect]
     Dosage: UNK
  4. CATAPRES [Suspect]
     Dosage: UNK
  5. AVAPRO [Suspect]
     Dosage: UNK
  6. ATIVAN [Suspect]
     Dosage: UNK
  7. COZAAR [Suspect]
     Dosage: UNK
  8. DEMEROL [Suspect]
     Dosage: UNK

REACTIONS (1)
  - Drug hypersensitivity [Unknown]
